FAERS Safety Report 14026298 (Version 2)
Quarter: 2017Q4

REPORT INFORMATION
  Report Type: Spontaneous
  Country: AU (occurrence: AU)
  Receive Date: 20170929
  Receipt Date: 20171003
  Transmission Date: 20180321
  Serious: Yes (Hospitalization)
  Sender: FDA-Public Use
  Company Number: AU-ABBVIE-17P-008-2114255-00

PATIENT
  Age: 60 Year
  Sex: Male
  Weight: 82 kg

DRUGS (1)
  1. VENETOCLAX. [Suspect]
     Active Substance: VENETOCLAX
     Indication: CHRONIC LYMPHOCYTIC LEUKAEMIA REFRACTORY
     Route: 048
     Dates: start: 20161024, end: 20170609

REACTIONS (3)
  - Hepatic lesion [Recovering/Resolving]
  - Jaundice cholestatic [Recovering/Resolving]
  - Richter^s syndrome [Recovering/Resolving]

NARRATIVE: CASE EVENT DATE: 20170414
